FAERS Safety Report 5889510-8 (Version None)
Quarter: 2008Q3

REPORT INFORMATION
  Report Type: 
  Country: None (occurrence: None)
  Receive Date: 20080919
  Receipt Date: 20080915
  Transmission Date: 20090109
  Serious: Yes (Hospitalization, Other)
  Sender: FDA-Public Use
  Company Number: CH-ASTRAZENECA-2008PK02041

PATIENT
  Age: 23384 Day
  Sex: Female

DRUGS (6)
  1. FASLODEX [Suspect]
     Indication: BREAST CANCER METASTATIC
     Route: 030
     Dates: start: 20080821
  2. ENATEC [Concomitant]
  3. ASPIRIN [Concomitant]
  4. OMEPRAZOLE [Concomitant]
  5. CALCIMAGON [Concomitant]
  6. LYRICA [Concomitant]

REACTIONS (1)
  - CEREBROVASCULAR ACCIDENT [None]
